FAERS Safety Report 23902420 (Version 1)
Quarter: 2024Q2

REPORT INFORMATION
  Report Type: Spontaneous
  Country: US (occurrence: None)
  Receive Date: 20240527
  Receipt Date: 20240527
  Transmission Date: 20240716
  Serious: No
  Sender: FDA-Public Use
  Company Number: US-ROCHE-3525521

PATIENT
  Sex: Male
  Weight: 95.34 kg

DRUGS (7)
  1. ACTEMRA [Suspect]
     Active Substance: TOCILIZUMAB
     Indication: Giant cell arteritis
     Route: 058
     Dates: start: 202402
  2. ACTEMRA [Suspect]
     Active Substance: TOCILIZUMAB
  3. XARELTO [Concomitant]
     Active Substance: RIVAROXABAN
     Indication: Pulmonary embolism
     Dates: start: 202307
  4. PREDNISONE [Concomitant]
     Active Substance: PREDNISONE
     Indication: Giant cell arteritis
     Dates: start: 20231227
  5. PREDNISONE [Concomitant]
     Active Substance: PREDNISONE
  6. CALCIUM [Concomitant]
     Active Substance: CALCIUM
     Route: 048
  7. CLINDAMYCIN [Concomitant]
     Active Substance: CLINDAMYCIN
     Dates: start: 202402, end: 202402

REACTIONS (3)
  - Tooth infection [Recovered/Resolved]
  - Wrong technique in device usage process [Unknown]
  - Device defective [Unknown]

NARRATIVE: CASE EVENT DATE: 20240201
